FAERS Safety Report 8158203-9 (Version None)
Quarter: 2012Q1

REPORT INFORMATION
  Report Type: 
  Country: None (occurrence: None)
  Receive Date: 20120222
  Receipt Date: 20120209
  Transmission Date: 20120608
  Serious: Yes (Death)
  Sender: FDA-Public Use
  Company Number: CZ-MYLANLABS-2012S1003265

PATIENT
  Sex: Female

DRUGS (9)
  1. TAMOXIFEN CITRATE [Concomitant]
     Indication: OVARIAN EPITHELIAL CANCER
     Dosage: 20 MG/DAY
     Route: 065
  2. PACLITAXEL [Suspect]
     Dosage: 175 MG/M2
     Route: 065
     Dates: end: 20060201
  3. PACLITAXEL [Suspect]
     Indication: BREAST CANCER
     Dosage: 175 MG/M2
     Route: 065
  4. PACLITAXEL [Suspect]
     Indication: OVARIAN EPITHELIAL CANCER
     Dosage: 175 MG/M2
     Route: 065
  5. CARBOPLATIN [Suspect]
     Indication: OVARIAN EPITHELIAL CANCER
     Dosage: AREA UNDER THE CURVE 6
     Route: 065
     Dates: end: 20060201
  6. GEMCITABINE [Concomitant]
     Indication: OVARIAN EPITHELIAL CANCER
     Dosage: 1 G/M2 EVERY 2 WEEKS
     Route: 065
     Dates: start: 20061101
  7. PACLITAXEL [Suspect]
     Dosage: 175 MG/M2
     Route: 065
     Dates: end: 20060201
  8. CISPLATIN [Suspect]
     Indication: OVARIAN EPITHELIAL CANCER
     Dosage: 40 MG/M2 EVERY 2 WEEKS
     Route: 065
     Dates: start: 20061101
  9. DOXORUBICIN HCL [Suspect]
     Indication: BREAST CANCER
     Dosage: 50 MG/M2 EVERY 3 WEEKS
     Route: 065

REACTIONS (1)
  - MYELODYSPLASTIC SYNDROME [None]
